FAERS Safety Report 22109467 (Version 1)
Quarter: 2023Q1

REPORT INFORMATION
  Report Type: Spontaneous
  Country: US (occurrence: None)
  Receive Date: 20230316
  Receipt Date: 20230316
  Transmission Date: 20230417
  Serious: Yes (unspecified)
  Sender: FDA-Public Use
  Company Number: None

PATIENT
  Age: 33 Year
  Sex: Female
  Weight: 64.41 kg

DRUGS (1)
  1. OCREVUS [Suspect]
     Active Substance: OCRELIZUMAB
     Indication: Multiple sclerosis
     Dosage: OTHER FREQUENCY : WK 0, 2, Q 6 MONTH;?
     Dates: start: 20230316

REACTIONS (2)
  - Incorrect drug administration rate [None]
  - Infusion related reaction [None]

NARRATIVE: CASE EVENT DATE: 20230316
